FAERS Safety Report 5047803-0 (Version None)
Quarter: 2006Q2

REPORT INFORMATION
  Report Type: 
  Country: None (occurrence: None)
  Receive Date: 20060630
  Receipt Date: 20060626
  Transmission Date: 20061013
  Serious: Yes (Other)
  Sender: FDA-Public Use
  Company Number: HQWYE450628JUN06

PATIENT
  Age: 62 Year
  Sex: Male
  Weight: 99.88 kg

DRUGS (10)
  1. ADVIL [Suspect]
     Indication: PAIN
     Dosage: 2 CAPSULE 1X PER 1 DAY, ORAL
     Route: 048
     Dates: start: 20060623, end: 20060623
  2. COREG [Concomitant]
  3. AVODART [Concomitant]
  4. FUROSEMIDE [Concomitant]
  5. PAMELOR [Concomitant]
  6. ASPIRIN [Concomitant]
  7. PLAVIX [Concomitant]
  8. WELLBUTRIN [Concomitant]
  9. DIGOXIN [Concomitant]
  10. NOVOLOG [Concomitant]

REACTIONS (2)
  - COAGULOPATHY [None]
  - MYOCARDIAL INFARCTION [None]
